FAERS Safety Report 7682490-4 (Version None)
Quarter: 2011Q3

REPORT INFORMATION
  Report Type: 
  Country: None (occurrence: None)
  Receive Date: 20110815
  Receipt Date: 20110801
  Transmission Date: 20111222
  Serious: Yes (Other)
  Sender: FDA-Public Use
  Company Number: PHHY2011BR70362

PATIENT
  Sex: Female

DRUGS (3)
  1. PENTOXIFYLLINE [Concomitant]
     Indication: CARDIOVASCULAR INSUFFICIENCY
     Dosage: 1 DF, DAILY
     Route: 048
  2. EXFORGE [Suspect]
     Indication: HYPERTENSION
     Dosage: 1 DF (VALSARTAN 320 MG/ AMLODIPINE BESYLATE 5 MG) IN THE MORNING
  3. HYDROCHLOROTHIAZIDE [Concomitant]
     Indication: CARDIOVASCULAR INSUFFICIENCY
     Dosage: 1 DF DAILY
     Route: 048

REACTIONS (2)
  - PNEUMONIA [None]
  - COUGH [None]
